FAERS Safety Report 23581787 (Version 1)
Quarter: 2024Q1

REPORT INFORMATION
  Report Type: Spontaneous
  Country: US (occurrence: US)
  Receive Date: 20240229
  Receipt Date: 20240229
  Transmission Date: 20240409
  Serious: No
  Sender: FDA-Public Use
  Company Number: US-PRIMUS-2023-US-043473

PATIENT
  Age: 71 Year
  Sex: Male

DRUGS (1)
  1. SERNIVO [Suspect]
     Active Substance: BETAMETHASONE DIPROPIONATE
     Indication: Rash
     Dosage: APPLY TOPICALLY TO AFFECTED AREA(S) TWICE DAILY
     Route: 061
     Dates: start: 20231218, end: 20231219

REACTIONS (2)
  - Palpitations [Unknown]
  - Off label use [Recovered/Resolved]

NARRATIVE: CASE EVENT DATE: 20231218
